FAERS Safety Report 6648472-6 (Version None)
Quarter: 2010Q1

REPORT INFORMATION
  Report Type: 
  Country: None (occurrence: None)
  Receive Date: 20100319
  Receipt Date: 20100311
  Transmission Date: 20100710
  Serious: Yes (Other)
  Sender: FDA-Public Use
  Company Number: 1000012409

PATIENT
  Sex: Female
  Weight: 2.76 kg

DRUGS (5)
  1. ESCITALOPRAM [Suspect]
     Dosage: 10 MG (10 MG, 1 IN 1 D), TRANSPLACENTAL
     Route: 064
     Dates: end: 20090730
  2. DENORAL [Suspect]
     Dosage: 2 IN 1 D, TRANSPLACENTAL
     Route: 064
     Dates: start: 20081127, end: 20081202
  3. ECHINACEA ANGUSTIFOLIA (DROPS) [Concomitant]
  4. ASCORBIC ACID [Concomitant]
  5. MULTIVITAMINS, OTHER COMBINATIONS [Concomitant]

REACTIONS (2)
  - FOETAL GROWTH RETARDATION [None]
  - MATERNAL DRUGS AFFECTING FOETUS [None]
